FAERS Safety Report 19259390 (Version 2)
Quarter: 2021Q3

REPORT INFORMATION
  Report Type: Report from Study
  Country: KR (occurrence: KR)
  Receive Date: 20210514
  Receipt Date: 20210726
  Transmission Date: 20211014
  Serious: Yes (Death, Hospitalization)
  Sender: FDA-Public Use
  Company Number: KR-EXELIXIS-XL18421039684

PATIENT

DRUGS (47)
  1. DENOGAN [Concomitant]
     Active Substance: PROPACETAMOL HYDROCHLORIDE
     Indication: PYREXIA
  2. VECARON [Concomitant]
  3. ULTIAN [Concomitant]
  4. TARIVID [Concomitant]
     Active Substance: OFLOXACIN
  5. ALBUMIN HUMAN [Concomitant]
     Active Substance: ALBUMIN HUMAN
     Indication: HYPOALBUMINAEMIA
  6. NORPINE [Concomitant]
     Indication: HYPOTENSION
  7. CABOZANTINIB [Suspect]
     Active Substance: CABOZANTINIB
     Indication: NON-SMALL CELL LUNG CANCER METASTATIC
     Dosage: 40 MG, QD
     Route: 048
     Dates: start: 20210325
  8. RELVAR ELLIPTA [Concomitant]
     Active Substance: FLUTICASONE FUROATE\VILANTEROL TRIFENATATE
     Indication: CHRONIC OBSTRUCTIVE PULMONARY DISEASE
  9. ROSAR [Concomitant]
     Indication: HYPERTENSION
  10. RHINATHIOL [Concomitant]
     Indication: PRODUCTIVE COUGH
  11. KEPPRA [Concomitant]
     Active Substance: LEVETIRACETAM
     Indication: PROPHYLAXIS
  12. MACPERAN [Concomitant]
     Active Substance: METOCLOPRAMIDE HYDROCHLORIDE
     Indication: NAUSEA
  13. SILVERSERINE [Concomitant]
  14. GLUCODOWNOR SR [Concomitant]
     Indication: DIABETES MELLITUS
  15. VASELINE PURE [Concomitant]
     Active Substance: PETROLATUM
     Indication: DRY SKIN
  16. GASTER [Concomitant]
     Active Substance: FAMOTIDINE
     Indication: GASTRITIS
  17. URSA [Concomitant]
     Active Substance: URSODIOL
     Indication: HEPATIC FUNCTION ABNORMAL
  18. TRIDOL [Concomitant]
     Active Substance: TRAMADOL HYDROCHLORIDE
     Indication: PAIN
  19. DICLON [Concomitant]
     Active Substance: DICLOFENAC SODIUM
     Indication: PYREXIA
  20. PHOSTEN [Concomitant]
     Indication: HYPOKALAEMIA
  21. ATEZOLIZUMAB. [Suspect]
     Active Substance: ATEZOLIZUMAB
     Indication: NON-SMALL CELL LUNG CANCER METASTATIC
     Dosage: 1200 MG, Q3WEEKS(DAY 1 OF EACH 21?DAY CYCLE)
     Route: 042
     Dates: start: 20210325
  22. SYNATURA [Concomitant]
     Indication: PRODUCTIVE COUGH
  23. PENIRAMIN [Concomitant]
     Indication: RASH
  24. HUMALOG [Concomitant]
     Active Substance: INSULIN LISPRO
     Indication: HYPERGLYCAEMIA
  25. ATROVENT UDV [Concomitant]
     Active Substance: IPRATROPIUM BROMIDE
     Indication: PNEUMONIA
  26. MUCOMYST [Concomitant]
     Active Substance: ACETYLCYSTEINE
     Indication: PNEUMONIA
  27. PLAVIX [Concomitant]
     Active Substance: CLOPIDOGREL BISULFATE
  28. LIPILOU [Concomitant]
     Indication: CAROTID ARTERIOSCLEROSIS
  29. NUCYNTA ER [Concomitant]
     Active Substance: TAPENTADOL HYDROCHLORIDE
     Indication: PALMAR-PLANTAR ERYTHRODYSAESTHESIA SYNDROME
  30. TRANSAMIN [Concomitant]
     Active Substance: TRANEXAMIC ACID
     Indication: HAEMOPTYSIS
  31. PETHIDINE [Concomitant]
     Active Substance: MEPERIDINE
     Indication: PAIN
  32. HEXAMEDIN [Concomitant]
     Indication: OROPHARYNGEAL PAIN
  33. NORVASC [Concomitant]
     Active Substance: AMLODIPINE BESYLATE
     Indication: HYPERTENSION
  34. LASIX [Concomitant]
     Active Substance: FUROSEMIDE
     Indication: OEDEMA
  35. PHENYLEPHRINE [Concomitant]
     Active Substance: PHENYLEPHRINE HYDROCHLORIDE
     Indication: HYPOTENSION
  36. ERDOS [Concomitant]
     Active Substance: ERDOSTEINE
     Indication: PRODUCTIVE COUGH
  37. PENTOTHAL [Concomitant]
     Active Substance: THIOPENTAL SODIUM
  38. LYRICA [Concomitant]
     Active Substance: PREGABALIN
     Indication: PARAESTHESIA
  39. MOTILITONE [Concomitant]
     Active Substance: HERBALS
     Indication: DYSPEPSIA
  40. DUPHALAC [Concomitant]
     Active Substance: LACTULOSE
     Indication: CONSTIPATION
  41. PYRIDOXINE HYDROCHLORIDE. [Concomitant]
     Active Substance: PYRIDOXINE HYDROCHLORIDE
     Indication: DRY SKIN
  42. NASERON [Concomitant]
     Active Substance: RAMOSETRON HYDROCHLORIDE
     Indication: NAUSEA
  43. FRESOFOL MCT [Concomitant]
  44. MUCOSTEN [Concomitant]
     Indication: PRODUCTIVE COUGH
  45. ULISTIN [Concomitant]
     Active Substance: ULINASTATIN
  46. INCRUSE ELLIPTA [Concomitant]
     Active Substance: UMECLIDINIUM BROMIDE
     Indication: CHRONIC OBSTRUCTIVE PULMONARY DISEASE
  47. ALFOATILIN [Concomitant]
     Indication: CAROTID ARTERIOSCLEROSIS

REACTIONS (2)
  - Pneumonia [Fatal]
  - Haemorrhage intracranial [Not Recovered/Not Resolved]

NARRATIVE: CASE EVENT DATE: 20210416
